FAERS Safety Report 18141271 (Version 1)
Quarter: 2020Q3

REPORT INFORMATION
  Report Type: Spontaneous
  Country: US (occurrence: US)
  Receive Date: 20200812
  Receipt Date: 20200812
  Transmission Date: 20201103
  Serious: Yes (Other)
  Sender: FDA-Public Use
  Company Number: US-NALPROPION PHARMACEUTICALS INC.-2020-010765

PATIENT
  Age: 45 Year
  Sex: Female
  Weight: 106.58 kg

DRUGS (1)
  1. CONTRAVE [Suspect]
     Active Substance: BUPROPION HYDROCHLORIDE\NALTREXONE HYDROCHLORIDE
     Indication: WEIGHT CONTROL
     Dosage: 1 TABLET ONCE A DAY
     Route: 048
     Dates: start: 20200718, end: 20200720

REACTIONS (9)
  - Vomiting [Recovered/Resolved]
  - Feeling abnormal [Recovered/Resolved]
  - Tunnel vision [Recovered/Resolved]
  - Nightmare [Recovered/Resolved]
  - Hallucination [Recovered/Resolved]
  - Fatigue [Recovered/Resolved]
  - Nausea [Recovered/Resolved]
  - Insomnia [Recovered/Resolved]
  - Hot flush [Recovered/Resolved]

NARRATIVE: CASE EVENT DATE: 20200718
